FAERS Safety Report 25401435 (Version 1)
Quarter: 2025Q2

REPORT INFORMATION
  Report Type: Report from Study
  Country: PH (occurrence: PH)
  Receive Date: 20250605
  Receipt Date: 20250605
  Transmission Date: 20250716
  Serious: Yes (Death)
  Sender: OTSUKA
  Company Number: PH-MMM-Otsuka-BHONQSGU

PATIENT

DRUGS (2)
  1. TOLVAPTAN [Suspect]
     Active Substance: TOLVAPTAN
     Indication: Product used for unknown indication
     Dosage: 0.5 DF, TIW (15 MG HALF TABLET EVERY MONDAY, WEDNESDAY, FRIDAY (MWF))
     Route: 048
     Dates: start: 202302
  2. TOLVAPTAN [Suspect]
     Active Substance: TOLVAPTAN
     Dosage: 0.25 DF, BIW (15 MG 1/4 TABLET TWICE A WEEK ONLY AS MONDAY AND THURSDAY)
     Route: 065

REACTIONS (1)
  - Death [Fatal]
